FAERS Safety Report 19762679 (Version 2)
Quarter: 2021Q3

REPORT INFORMATION
  Report Type: Spontaneous
  Country: US (occurrence: US)
  Receive Date: 20210828
  Receipt Date: 20210901
  Transmission Date: 20211014
  Serious: Yes (Hospitalization)
  Sender: FDA-Public Use
  Company Number: US-AMGEN-USASP2021129235

PATIENT
  Age: 82 Year
  Sex: Male
  Weight: 81.18 kg

DRUGS (1)
  1. NEULASTA [Suspect]
     Active Substance: PEGFILGRASTIM
     Indication: NEUTROPENIA
     Dosage: UNK
     Route: 065

REACTIONS (3)
  - Procedural complication [Unknown]
  - Unintentional medical device removal [Unknown]
  - Unevaluable event [Unknown]

NARRATIVE: CASE EVENT DATE: 202106
